FAERS Safety Report 10709642 (Version 1)
Quarter: 2015Q1

REPORT INFORMATION
  Report Type: Report from Study
  Country: US (occurrence: US)
  Receive Date: 20150114
  Receipt Date: 20150114
  Transmission Date: 20150721
  Serious: Yes (Disabling)
  Sender: FDA-Public Use
  Company Number: PHEH2014US022550

PATIENT
  Age: 49 Year
  Sex: Male
  Weight: 59 kg

DRUGS (1)
  1. GILENYA [Suspect]
     Active Substance: FINGOLIMOD HYDROCHLORIDE
     Indication: MULTIPLE SCLEROSIS
     Dosage: 0.5 MG, QD
     Route: 048
     Dates: start: 20140804

REACTIONS (2)
  - Fatigue [Recovered/Resolved]
  - Somnolence [Unknown]

NARRATIVE: CASE EVENT DATE: 20140804
